FAERS Safety Report 7376026-5 (Version None)
Quarter: 2011Q1

REPORT INFORMATION
  Report Type: 
  Country: None (occurrence: None)
  Receive Date: 20110325
  Receipt Date: 20110316
  Transmission Date: 20110831
  Serious: Yes (Hospitalization)
  Sender: FDA-Public Use
  Company Number: DE-JNJFOC-20100607123

PATIENT
  Sex: Female
  Weight: 79 kg

DRUGS (13)
  1. GOLIMUMAB [Suspect]
     Indication: RHEUMATOID ARTHRITIS
     Route: 058
  2. FOSAVANCE [Concomitant]
     Route: 048
  3. DELIX [Concomitant]
     Route: 048
  4. AMLODIPINE [Concomitant]
     Route: 048
  5. PANTOPRAZOLE [Concomitant]
     Route: 048
  6. RAMIPRIL [Concomitant]
     Route: 048
  7. METOHEXAL [Concomitant]
     Route: 048
  8. CALCIUM CARBONATE [Concomitant]
     Route: 048
  9. GOLIMUMAB [Suspect]
     Route: 058
  10. INDOMETHACIN SODIUM [Concomitant]
     Route: 048
  11. PREDNISOLONE [Concomitant]
     Route: 048
  12. RASILEZ [Concomitant]
     Route: 048
  13. PLACEBO [Suspect]
     Indication: RHEUMATOID ARTHRITIS
     Route: 058

REACTIONS (1)
  - HAEMATOMA [None]
